FAERS Safety Report 12627370 (Version 1)
Quarter: 2016Q3

REPORT INFORMATION
  Report Type: Report from Study
  Country: US (occurrence: US)
  Receive Date: 20160805
  Receipt Date: 20160805
  Transmission Date: 20161109
  Serious: No
  Sender: FDA-Public Use
  Company Number: US-AMGEN-USASL2016079678

PATIENT
  Age: 65 Year
  Sex: Male

DRUGS (1)
  1. NPLATE [Suspect]
     Active Substance: ROMIPLOSTIM
     Indication: PLATELET COUNT DECREASED
     Dosage: UNK, QWK
     Route: 065

REACTIONS (4)
  - Blood cholesterol abnormal [Unknown]
  - Blood pressure abnormal [Unknown]
  - Prostatomegaly [Unknown]
  - Platelet count decreased [Recovered/Resolved]
